FAERS Safety Report 10143054 (Version 1)
Quarter: 2014Q2

REPORT INFORMATION
  Report Type: Spontaneous
  Country: US (occurrence: None)
  Receive Date: 20140429
  Receipt Date: 20140429
  Transmission Date: 20141212
  Serious: Yes (Other)
  Sender: FDA-Public Use
  Company Number: None

PATIENT
  Age: 64 Year
  Sex: Female

DRUGS (8)
  1. ARIMIDEX [Suspect]
     Indication: BREAST CANCER
     Route: 048
     Dates: start: 20130601, end: 20140428
  2. OMEPRAZOLE [Concomitant]
  3. MEPERIDINE [Concomitant]
  4. BIOTIN [Concomitant]
  5. CALCIUM CARBONATE [Concomitant]
  6. COENZYME Q10 [Concomitant]
  7. DEXILANT [Concomitant]
  8. HCTZ [Concomitant]

REACTIONS (2)
  - Arthralgia [None]
  - Back pain [None]
